FAERS Safety Report 21473033 (Version 1)
Quarter: 2022Q4

REPORT INFORMATION
  Report Type: Report from Study
  Country: DE (occurrence: DE)
  Receive Date: 20221018
  Receipt Date: 20221018
  Transmission Date: 20230113
  Serious: Yes (Congenital Anomaly, Other)
  Sender: FDA-Public Use
  Company Number: DE-MYLANLABS-2022M1114762

PATIENT
  Sex: Male

DRUGS (1)
  1. IBUPROFEN [Suspect]
     Active Substance: IBUPROFEN
     Indication: Migraine
     Dosage: UNK UNK, QD (400-800 MG/DAY WHEN NEEDED)
     Route: 064

REACTIONS (3)
  - Renal hypoplasia [Unknown]
  - Kidney enlargement [Unknown]
  - Foetal exposure during pregnancy [Unknown]
